FAERS Safety Report 9345848 (Version 5)
Quarter: 2013Q4

REPORT INFORMATION
  Report Type: Report from Study
  Country: US (occurrence: US)
  Receive Date: 20130613
  Receipt Date: 20131004
  Transmission Date: 20140711
  Serious: Yes (Hospitalization)
  Sender: FDA-Public Use
  Company Number: US-ROCHE-1231292

PATIENT
  Age: 72 Year
  Sex: Female
  Weight: 52.4 kg

DRUGS (5)
  1. TRASTUZUMAB EMTANSINE [Suspect]
     Indication: HER-2 POSITIVE BREAST CANCER
     Dosage: MOST RECENT DOSE PRIOR TO SAE: 26/MAR/2013
     Route: 042
     Dates: start: 20121106
  2. PERTUZUMAB [Suspect]
     Indication: HER-2 POSITIVE BREAST CANCER
     Route: 042
     Dates: start: 20121106
  3. PERTUZUMAB [Suspect]
     Dosage: MOST RECENT DOSE PRIOR TO SAE: 26/MAR/2013
     Route: 042
  4. PACLITAXEL [Suspect]
     Indication: HER-2 POSITIVE BREAST CANCER
     Dosage: DOSE: 80MG/M2 AS PER PROTOCOL. MOST RECENT DOSE PRIOR TO SAE: 02/APR/2013
     Route: 042
     Dates: start: 20121106
  5. IMODIUM [Concomitant]
     Indication: DIARRHOEA
     Route: 065
     Dates: start: 20090818

REACTIONS (2)
  - Device occlusion [Recovered/Resolved]
  - Hepatic function abnormal [Recovered/Resolved]
